FAERS Safety Report 6632115-1 (Version None)
Quarter: 2010Q1

REPORT INFORMATION
  Report Type: 
  Country: None (occurrence: None)
  Receive Date: 20100310
  Receipt Date: 20100301
  Transmission Date: 20100710
  Serious: Yes (Hospitalization, Other)
  Sender: FDA-Public Use
  Company Number: 2010SP008096

PATIENT
  Age: 68 Year
  Sex: Female

DRUGS (4)
  1. PEG-INTRON [Suspect]
     Indication: HEPATITIS C
     Dosage: 150 MCG;QW;SC ; 120 MCG;QW;SC
     Route: 058
     Dates: start: 20100119, end: 20100129
  2. PEG-INTRON [Suspect]
     Indication: HEPATITIS C
     Dosage: 150 MCG;QW;SC ; 120 MCG;QW;SC
     Route: 058
     Dates: start: 20100104
  3. RIBAVIRIN [Suspect]
     Indication: HEPATITIS C
     Dosage: 1400 MC;QD;PO ; 1000 MG;QD;PO
     Route: 048
     Dates: start: 20100119, end: 20100129
  4. RIBAVIRIN [Suspect]
     Indication: HEPATITIS C
     Dosage: 1400 MC;QD;PO ; 1000 MG;QD;PO
     Route: 048
     Dates: start: 20100104

REACTIONS (4)
  - CELLULITIS [None]
  - FULL BLOOD COUNT DECREASED [None]
  - NASOPHARYNGITIS [None]
  - PULMONARY EMBOLISM [None]
